FAERS Safety Report 20619771 (Version 1)
Quarter: 2022Q1

REPORT INFORMATION
  Report Type: Spontaneous
  Country: US (occurrence: US)
  Receive Date: 20220322
  Receipt Date: 20220322
  Transmission Date: 20220424
  Serious: Yes (Other)
  Sender: FDA-Public Use
  Company Number: US-CELLTRION INC.-2022US003242

PATIENT

DRUGS (1)
  1. TRUXIMA [Suspect]
     Active Substance: RITUXIMAB-ABBS
     Indication: Pyelonephritis acute
     Dosage: 1000 MG DAY 1, DAY 15 EVERY 6 MONTHS
     Dates: start: 20220131

REACTIONS (2)
  - Pyelonephritis acute [Unknown]
  - Off label use [Unknown]
